FAERS Safety Report 13209849 (Version 14)
Quarter: 2017Q2

REPORT INFORMATION
  Report Type: Report from Study
  Country: None (occurrence: BE)
  Receive Date: 20170209
  Receipt Date: 20170422
  Transmission Date: 20170830
  Serious: Yes (Hospitalization, Other)
  Sender: FDA-Public Use
  Company Number: BE-ABBVIE-17P-013-1867001-00

PATIENT
  Age: 78 Year
  Sex: Female

DRUGS (24)
  1. BETASERC [Concomitant]
     Active Substance: BETAHISTINE
     Indication: PRODUCT USED FOR UNKNOWN INDICATION
  2. DUODOPA [Suspect]
     Active Substance: CARBIDOPA\LEVODOPA
     Dosage: AM 1.5ML, CD 3.6ML/HR DURING 16HRS, ED 1.0ML
     Route: 050
     Dates: start: 20170214, end: 20170222
  3. DUODOPA [Suspect]
     Active Substance: CARBIDOPA\LEVODOPA
     Dosage: AM=2.4ML?CD=3.3ML/HR DURING 16HRS?ED=0.6ML
     Route: 050
     Dates: start: 20160923, end: 20160923
  4. DUODOPA [Suspect]
     Active Substance: CARBIDOPA\LEVODOPA
     Dosage: AM 2.2ML?CD 3.3ML/HR DURING 16HRS ?ED 0.6ML
     Route: 050
     Dates: start: 20170131, end: 20170203
  5. ZOLPIDEM [Concomitant]
     Active Substance: ZOLPIDEM\ZOLPIDEM TARTRATE
     Indication: PRODUCT USED FOR UNKNOWN INDICATION
  6. PROLOPA [Concomitant]
     Active Substance: BENSERAZIDE\LEVODOPA
     Indication: PRODUCT USED FOR UNKNOWN INDICATION
     Dosage: 200MG/50MG; 0.5 TABLET 4X /DAY + 0.75 TABLET DAILY
  7. DUODOPA [Suspect]
     Active Substance: CARBIDOPA\LEVODOPA
     Dosage: AM 1ML, CD 3.6ML/HR DURING 16HRS, ED 0.5ML
     Route: 050
     Dates: start: 20170206, end: 20170214
  8. DUODOPA [Suspect]
     Active Substance: CARBIDOPA\LEVODOPA
     Dosage: AM=2ML, CD=3.8ML/HR DURING 16HRS, ED=1ML
     Route: 050
     Dates: start: 20170222, end: 20170228
  9. DUODOPA [Suspect]
     Active Substance: CARBIDOPA\LEVODOPA
     Dosage: AM=2ML, CD=4 ML/HR DURING 16HRS, ED=2ML
     Route: 050
     Dates: start: 20170228, end: 20170306
  10. DUODOPA [Suspect]
     Active Substance: CARBIDOPA\LEVODOPA
     Dosage: AM=2ML, CD=4.3 ML/HR DURING 16HRS, ED=3ML
     Route: 050
     Dates: start: 20170306, end: 20170412
  11. DUODOPA [Suspect]
     Active Substance: CARBIDOPA\LEVODOPA
     Dosage: AM=2.5ML, CD=4.3ML/HR DURING 16HRS, ED=3ML
     Route: 050
     Dates: start: 20170412
  12. PROLOPA [Concomitant]
     Active Substance: BENSERAZIDE\LEVODOPA
     Indication: PRODUCT USED FOR UNKNOWN INDICATION
     Dosage: FORM STRENGTH: 100MG/25MG??UNIT DOSE : 1 TABLET
  13. PROLOPA [Concomitant]
     Active Substance: BENSERAZIDE\LEVODOPA
     Dosage: FORM STRENGTH: 100MG/25MG?UNIT DOSE : 1 TABLET?2 TIMES/DAY AS RESCUE MEDICATION
  14. DUODOPA [Suspect]
     Active Substance: CARBIDOPA\LEVODOPA
     Indication: PARKINSON^S DISEASE
     Dosage: AM=4ML?CD=2.5ML/HR DURING 16HRS?ED=0.5ML
     Route: 050
     Dates: start: 20160920, end: 20160921
  15. DUODOPA [Suspect]
     Active Substance: CARBIDOPA\LEVODOPA
     Dosage: DOSES CONTINUOUSLY MONITORED AND ADAPTED
     Route: 050
     Dates: start: 20160921, end: 20160923
  16. FEMARA [Concomitant]
     Active Substance: LETROZOLE
     Indication: PRODUCT USED FOR UNKNOWN INDICATION
  17. DUODOPA [Suspect]
     Active Substance: CARBIDOPA\LEVODOPA
     Dosage: AM 1ML?CD 3.1ML/HR DURING 16HRS ?ED 0.3ML
     Route: 050
     Dates: start: 20170203, end: 20170206
  18. EMCONCOR [Concomitant]
     Active Substance: BISOPROLOL FUMARATE
     Indication: PRODUCT USED FOR UNKNOWN INDICATION
  19. ZOCOR [Concomitant]
     Active Substance: SIMVASTATIN
     Indication: PRODUCT USED FOR UNKNOWN INDICATION
  20. DUODOPA [Suspect]
     Active Substance: CARBIDOPA\LEVODOPA
     Dosage: AM 1ML?CD 3.4ML/HR DURING 16HRS ?ED 0.5ML
     Route: 050
     Dates: start: 20170206, end: 20170206
  21. STEOVIT [Concomitant]
     Active Substance: CALCIUM CARBONATE
     Indication: PRODUCT USED FOR UNKNOWN INDICATION
  22. FURADANTINE [Concomitant]
     Active Substance: NITROFURANTOIN
     Indication: PRODUCT USED FOR UNKNOWN INDICATION
  23. PROLOPA [Concomitant]
     Active Substance: BENSERAZIDE\LEVODOPA
     Dosage: 200MG/50MG;  0.5 TABLET 4X/DAY + 0.75 TABLET DAILY?RESCUE MEDICATION
  24. ASAFLOW [Concomitant]
     Active Substance: ASPIRIN
     Indication: PRODUCT USED FOR UNKNOWN INDICATION

REACTIONS (11)
  - Pyrexia [Recovered/Resolved]
  - Mobility decreased [Recovering/Resolving]
  - Device use issue [Recovering/Resolving]
  - Asphyxia [Recovered/Resolved]
  - Dyskinesia [Not Recovered/Not Resolved]
  - On and off phenomenon [Unknown]
  - Gait disturbance [Unknown]
  - Freezing phenomenon [Recovering/Resolving]
  - Drug ineffective [Recovering/Resolving]
  - Pneumonia aspiration [Recovered/Resolved]
  - Drug effect incomplete [Unknown]

NARRATIVE: CASE EVENT DATE: 20170129
